FAERS Safety Report 9609256 (Version 2)
Quarter: 2013Q4

REPORT INFORMATION
  Report Type: Spontaneous
  Country: US (occurrence: US)
  Receive Date: 20131009
  Receipt Date: 20131009
  Transmission Date: 20140711
  Serious: No
  Sender: FDA-Public Use
  Company Number: US-PURDUE-USA-2012-0094707

PATIENT
  Age: 52 Year
  Sex: Female
  Weight: 124.26 kg

DRUGS (3)
  1. BUTRANS [Suspect]
     Indication: PAIN
     Dosage: 10 MCG, WEEKLY
     Route: 062
  2. BUTRANS [Suspect]
     Dosage: 20 MCG, WEEKLY
     Route: 062
     Dates: end: 20121106
  3. QUINAPRIL                          /00810602/ [Concomitant]
     Indication: PRODUCT USED FOR UNKNOWN INDICATION
     Dosage: 10 MG, DAILY

REACTIONS (8)
  - Application site discolouration [Not Recovered/Not Resolved]
  - Device leakage [Unknown]
  - Application site rash [Recovered/Resolved]
  - Inadequate analgesia [Unknown]
  - Application site erythema [Not Recovered/Not Resolved]
  - Application site pruritus [Not Recovered/Not Resolved]
  - Application site vesicles [Not Recovered/Not Resolved]
  - Application site exfoliation [Not Recovered/Not Resolved]
